FAERS Safety Report 9725482 (Version 1)
Quarter: 2013Q4

REPORT INFORMATION
  Report Type: Spontaneous
  Country: US (occurrence: US)
  Receive Date: 20131203
  Receipt Date: 20131203
  Transmission Date: 20140711
  Serious: Yes (Other)
  Sender: FDA-Public Use
  Company Number: US-BAYER-2013-144347

PATIENT
  Age: 67 Year
  Sex: Female

DRUGS (2)
  1. BETASERON [Suspect]
     Indication: MULTIPLE SCLEROSIS
     Dosage: 0.25 MG, UNK
     Route: 058
  2. TYLENOL [PARACETAMOL] [Concomitant]
     Indication: PREMEDICATION

REACTIONS (2)
  - Chills [None]
  - Seizure like phenomena [None]
